FAERS Safety Report 6427771-7 (Version None)
Quarter: 2009Q4

REPORT INFORMATION
  Report Type: 
  Country: None (occurrence: None)
  Receive Date: 20091030
  Receipt Date: 20091021
  Transmission Date: 20100525
  Serious: Yes (Other)
  Sender: FDA-Public Use
  Company Number: OSCN-PR-0910L-0464

PATIENT

DRUGS (1)
  1. OMNISCAN [Suspect]
     Indication: DRUG USE FOR UNKNOWN INDICATION
     Dosage: 0.1 MMOL/KG, SINGLE DOSE, I.V.
     Route: 042
     Dates: start: 20041103, end: 20041103

REACTIONS (1)
  - NEPHROGENIC SYSTEMIC FIBROSIS [None]
